FAERS Safety Report 8847040 (Version 2)
Quarter: 2012Q4

REPORT INFORMATION
  Report Type: 
  Country: JP (occurrence: JP)
  Receive Date: 20121018
  Receipt Date: 20121031
  Transmission Date: 20130627
  Serious: Yes (Hospitalization)
  Sender: FDA-Public Use
  Company Number: JP-009507513-2012SP033493

PATIENT
  Age: 51 Year
  Sex: Male

DRUGS (3)
  1. REBETOL [Suspect]
     Indication: HEPATITIS C
     Dosage: 200 mg in the morning and 400 mg in the evening
     Route: 048
     Dates: start: 20120525, end: 20120602
  2. FERON [Suspect]
     Indication: HEPATITIS C
     Dosage: 6 MIU, qd,
     Route: 041
     Dates: start: 20120525, end: 20120602
  3. NEUCHLONIC [Concomitant]
     Indication: INSOMNIA
     Dosage: divided dose frequency unknown
     Route: 048
     Dates: start: 20120518, end: 20120602

REACTIONS (2)
  - Hallucination, visual [Unknown]
  - Hallucination, auditory [Unknown]
